FAERS Safety Report 20417362 (Version 5)
Quarter: 2022Q3

REPORT INFORMATION
  Report Type: Spontaneous
  Country: JP (occurrence: JP)
  Receive Date: 20220202
  Receipt Date: 20220714
  Transmission Date: 20221027
  Serious: No
  Sender: FDA-Public Use
  Company Number: JP-GSKNCCC-Case-01406484_AE-54191

PATIENT

DRUGS (4)
  1. SOTROVIMAB [Suspect]
     Active Substance: SOTROVIMAB
     Indication: COVID-19
     Dosage: 500 MG/50 ML/30 MIN, QD, ACTUALLY ABOUT 80% WAS GIVEN
     Dates: start: 20220121, end: 20220121
  2. MAGNESIUM OXIDE [Concomitant]
     Active Substance: MAGNESIUM OXIDE
     Dosage: 2 DF, BID, IN THE MORNING AND EVENING
  3. SODIUM FERROUS CITRATE [Concomitant]
     Active Substance: SODIUM FERROUS CITRATE
     Dosage: 1 DF, QD, IN THE MORNING
  4. DONEPEZIL HYDROCHLORIDE [Concomitant]
     Active Substance: DONEPEZIL HYDROCHLORIDE
     Dosage: 1 DF, QD, IN THE EVENING

REACTIONS (4)
  - Injection site hypoaesthesia [Recovered/Resolved]
  - Injection site pain [Recovered/Resolved]
  - Injection site extravasation [Unknown]
  - Infusion related reaction [Recovered/Resolved]

NARRATIVE: CASE EVENT DATE: 20220121
